FAERS Safety Report 19632725 (Version 2)
Quarter: 2021Q3

REPORT INFORMATION
  Report Type: Spontaneous
  Country: JP (occurrence: JP)
  Receive Date: 20210728
  Receipt Date: 20210817
  Transmission Date: 20211014
  Serious: Yes (Other)
  Sender: FDA-Public Use
  Company Number: JP-JNJFOC-20210756201

PATIENT
  Age: 70 Year
  Sex: Male
  Weight: 46 kg

DRUGS (9)
  1. STELARA [Suspect]
     Active Substance: USTEKINUMAB
     Indication: COLITIS ULCERATIVE
     Dosage: USTEKINUMAB (GENETICAL RECOMBINATION):130MG
     Route: 042
     Dates: start: 20210316
  2. ETIZOLAM [Concomitant]
     Active Substance: ETIZOLAM
     Route: 065
  3. CELECOXIB. [Concomitant]
     Active Substance: CELECOXIB
  4. TAKECAB [Concomitant]
     Active Substance: VONOPRAZAN FUMARATE
     Route: 065
  5. BIO?THREE [Concomitant]
     Active Substance: HERBALS
     Route: 065
  6. STELARA [Suspect]
     Active Substance: USTEKINUMAB
     Dosage: USTEKINUMAB (GENETICAL RECOMBINATION):45 MG
     Route: 058
     Dates: start: 20210511
  7. PENTASA [Concomitant]
     Active Substance: MESALAMINE
     Route: 065
  8. LAC?B [Concomitant]
     Active Substance: BIFIDOBACTERIUM SPP.
     Route: 065
  9. PREDONINE [Concomitant]
     Active Substance: PREDNISOLONE
     Route: 065

REACTIONS (2)
  - Cholangitis sclerosing [Unknown]
  - Hepatic function abnormal [Not Recovered/Not Resolved]

NARRATIVE: CASE EVENT DATE: 20210608
